FAERS Safety Report 20840734 (Version 5)
Quarter: 2022Q2

REPORT INFORMATION
  Report Type: Report from Study
  Country: CA (occurrence: CA)
  Receive Date: 20220517
  Receipt Date: 20220608
  Transmission Date: 20220721
  Serious: Yes (Death, Other)
  Sender: FDA-Public Use
  Company Number: CA-GILEAD-2022-0581723

PATIENT
  Age: 50 Year
  Sex: Female

DRUGS (2)
  1. SACITUZUMAB GOVITECAN [Suspect]
     Active Substance: SACITUZUMAB GOVITECAN
     Indication: Triple negative breast cancer
     Dosage: 535 MG
     Route: 042
     Dates: start: 20220505
  2. SACITUZUMAB GOVITECAN [Suspect]
     Active Substance: SACITUZUMAB GOVITECAN
     Dosage: 235 MG
     Route: 042

REACTIONS (7)
  - Breast cancer metastatic [Fatal]
  - Transfusion reaction [Unknown]
  - Device related sepsis [Unknown]
  - Malaise [Unknown]
  - Liver function test increased [Unknown]
  - Weight decreased [Not Recovered/Not Resolved]
  - Rash [Not Recovered/Not Resolved]

NARRATIVE: CASE EVENT DATE: 20220501
